FAERS Safety Report 8291986-6 (Version None)
Quarter: 2012Q2

REPORT INFORMATION
  Report Type: 
  Country: None (occurrence: None)
  Receive Date: 20120417
  Receipt Date: 20120406
  Transmission Date: 20120825
  Serious: Yes (Other)
  Sender: FDA-Public Use
  Company Number: JP-ELI_LILLY_AND_COMPANY-JP201201008647

PATIENT
  Sex: Female
  Weight: 33 kg

DRUGS (6)
  1. LAC-B [Concomitant]
     Dosage: UNK
     Route: 048
  2. FORTEO [Suspect]
     Indication: OSTEOPOROSIS
     Dosage: 20 UG, QD
     Route: 058
     Dates: start: 20120124, end: 20120124
  3. TOLTERODINE TARTRATE [Concomitant]
     Dosage: UNK
     Route: 048
  4. ALSIODOL [Concomitant]
     Indication: OSTEOPOROSIS
     Dosage: 1 UG, QD
     Route: 048
     Dates: start: 20110515, end: 20120123
  5. ALSIODOL [Concomitant]
     Dosage: UNK
     Route: 048
     Dates: start: 20120125
  6. MAGNESIUM OXIDE HEAVY [Concomitant]
     Indication: CONSTIPATION
     Dosage: UNK
     Route: 048

REACTIONS (4)
  - NAUSEA [None]
  - LOSS OF CONSCIOUSNESS [None]
  - DIZZINESS [None]
  - HEADACHE [None]
